FAERS Safety Report 6048581-9 (Version None)
Quarter: 2009Q1

REPORT INFORMATION
  Report Type: 
  Country: None (occurrence: None)
  Receive Date: 20090123
  Receipt Date: 20090115
  Transmission Date: 20090719
  Serious: Yes (Hospitalization)
  Sender: FDA-Public Use
  Company Number: ZA-PFIZER INC-2009153826

PATIENT

DRUGS (6)
  1. BLINDED *PLACEBO [Suspect]
     Indication: COLORECTAL CANCER
     Dosage: 25 MG, 1X/DAY
     Route: 048
     Dates: start: 20080528
  2. BLINDED SUNITINIB MALATE [Suspect]
     Indication: COLORECTAL CANCER
     Dosage: 25 MG, 1X/DAY
     Route: 048
     Dates: start: 20080528
  3. IRINOTECAN HCL [Suspect]
     Indication: COLORECTAL CANCER
     Dosage: 273.6 MG, EVERY 2 WEEKS
     Route: 017
     Dates: start: 20080528
  4. FLUOROURACIL [Suspect]
     Indication: COLORECTAL CANCER
     Dosage: 608 MG LOADING EVERY 2 WKS
     Route: 042
     Dates: start: 20080528
  5. FLUOROURACIL [Suspect]
     Dosage: 3648 MG INFUSION EVERY 2 WKS
     Dates: start: 20080528
  6. CALCIUM FOLINATE [Suspect]
     Indication: COLORECTAL CANCER
     Dosage: 380 MG, EVERY 2 WEEKS
     Route: 042
     Dates: start: 20080528

REACTIONS (1)
  - SUBCUTANEOUS ABSCESS [None]
